FAERS Safety Report 21207975 (Version 10)
Quarter: 2023Q2

REPORT INFORMATION
  Report Type: Spontaneous
  Country: US (occurrence: US)
  Receive Date: 20220812
  Receipt Date: 20230620
  Transmission Date: 20230722
  Serious: Yes (Other)
  Sender: FDA-Public Use
  Company Number: US-PFIZER INC-PV202200041002

PATIENT
  Age: 50 Year
  Sex: Female

DRUGS (1)
  1. IBRANCE [Suspect]
     Active Substance: PALBOCICLIB
     Dosage: UNK

REACTIONS (11)
  - Neuropathy peripheral [Unknown]
  - Diarrhoea [Unknown]
  - Somnolence [Unknown]
  - Pain [Unknown]
  - Cheilitis [Unknown]
  - Skin exfoliation [Unknown]
  - Hot flush [Recovering/Resolving]
  - Paraesthesia [Unknown]
  - Feeling abnormal [Recovering/Resolving]
  - White blood cell count decreased [Unknown]
  - Memory impairment [Unknown]

NARRATIVE: CASE EVENT DATE: 20220101
